FAERS Safety Report 8255827-5 (Version None)
Quarter: 2012Q2

REPORT INFORMATION
  Report Type: 
  Country: None (occurrence: None)
  Receive Date: 20120403
  Receipt Date: 20120319
  Transmission Date: 20120825
  Serious: Yes (Hospitalization)
  Sender: FDA-Public Use
  Company Number: JP-ROCHE-1021655

PATIENT
  Sex: Female
  Weight: 44 kg

DRUGS (8)
  1. LEVOTHYROXINE SODIUM [Concomitant]
     Route: 048
     Dates: start: 20110101
  2. LASIX [Concomitant]
     Route: 048
     Dates: start: 20110101
  3. PROMACTA [Concomitant]
     Route: 048
     Dates: start: 20110101
  4. RABEPRAZOLE SODIUM [Concomitant]
     Route: 048
     Dates: start: 20110101
  5. AMLODIPINE [Concomitant]
     Route: 048
     Dates: start: 20110101
  6. GASMOTIN [Concomitant]
     Route: 048
     Dates: start: 20110101
  7. MIRCERA [Suspect]
     Indication: NEPHROGENIC ANAEMIA
     Route: 042
     Dates: start: 20111102, end: 20111102
  8. DIART [Concomitant]
     Route: 048
     Dates: start: 20110101

REACTIONS (1)
  - ANAEMIA [None]
